FAERS Safety Report 20096486 (Version 1)
Quarter: 2021Q4

REPORT INFORMATION
  Report Type: Spontaneous
  Country: US (occurrence: US)
  Receive Date: 20211122
  Receipt Date: 20211122
  Transmission Date: 20220304
  Serious: No
  Sender: FDA-Public Use
  Company Number: US-PFIZER INC-202101572746

PATIENT
  Age: 66 Year
  Sex: Female

DRUGS (3)
  1. IBRANCE [Suspect]
     Active Substance: PALBOCICLIB
     Dosage: 125 MG, CYCLIC (125MG BY MOUTH DAYS 1 THROUGH 21 EVERY 28 DAYS)
     Route: 048
     Dates: start: 20210903
  2. CALCIUM D [CALCIUM CARBONATE;COLECALCIFEROL] [Concomitant]
     Dosage: UNK
  3. FULVESTRANT [Concomitant]
     Active Substance: FULVESTRANT
     Dosage: UNK

REACTIONS (1)
  - Fatigue [Unknown]
